FAERS Safety Report 19259524 (Version 2)
Quarter: 2021Q2

REPORT INFORMATION
  Report Type: Spontaneous
  Country: CA (occurrence: CA)
  Receive Date: 20210514
  Receipt Date: 20210520
  Transmission Date: 20210717
  Serious: Yes (Death, Other)
  Sender: FDA-Public Use
  Company Number: CA-OTSUKA-2021_013231

PATIENT
  Age: 62 Year
  Sex: Male

DRUGS (2)
  1. EPREX [Concomitant]
     Active Substance: ERYTHROPOIETIN
     Indication: PRODUCT USED FOR UNKNOWN INDICATION
     Dosage: 40000 IU, QW
     Route: 065
     Dates: start: 20201028
  2. INQOVI [Suspect]
     Active Substance: CEDAZURIDINE\DECITABINE
     Indication: MYELODYSPLASTIC SYNDROME
     Dosage: (35 MG OF DECITABINE AND 100 MG OF CEDAZURIDINE)
     Route: 065
     Dates: start: 20201120

REACTIONS (7)
  - Haemorrhage [Unknown]
  - COVID-19 [Recovered/Resolved]
  - Sepsis [Fatal]
  - Cytopenia [Unknown]
  - Haematochezia [Unknown]
  - Febrile neutropenia [Unknown]
  - Haematuria [Unknown]

NARRATIVE: CASE EVENT DATE: 20201209
